FAERS Safety Report 24892524 (Version 1)
Quarter: 2025Q1

REPORT INFORMATION
  Report Type: Spontaneous
  Country: JP (occurrence: JP)
  Receive Date: 20250128
  Receipt Date: 20250128
  Transmission Date: 20250408
  Serious: Yes (Hospitalization, Other)
  Sender: BRISTOL-MYERS SQUIBB COMPANY
  Company Number: JP-BRISTOL-MYERS SQUIBB COMPANY-2024-178205

PATIENT
  Age: 9 Decade

DRUGS (2)
  1. REVLIMID [Suspect]
     Active Substance: LENALIDOMIDE
     Indication: Plasma cell myeloma
     Dosage: ADMINISTERED WITH 3 WEEKS ON AND THEN 1 WEEK OFF
     Route: 048
  2. REVLIMID [Suspect]
     Active Substance: LENALIDOMIDE
     Route: 048
     Dates: start: 20241021, end: 20241105

REACTIONS (3)
  - Product dose omission in error [Unknown]
  - Fall [Unknown]
  - Compression fracture [Recovering/Resolving]

NARRATIVE: CASE EVENT DATE: 20241105
